FAERS Safety Report 7462457-1 (Version None)
Quarter: 2011Q2

REPORT INFORMATION
  Report Type: 
  Country: None (occurrence: None)
  Receive Date: 20110506
  Receipt Date: 20110505
  Transmission Date: 20111010
  Serious: Yes (Other)
  Sender: FDA-Public Use
  Company Number: ES-BRISTOL-MYERS SQUIBB COMPANY-15719651

PATIENT
  Sex: Male

DRUGS (1)
  1. SPRYCEL [Suspect]
     Dosage: AUTHORIZATION NO:21-986

REACTIONS (1)
  - LYMPHADENOPATHY [None]
